FAERS Safety Report 9288366 (Version 6)
Quarter: 2019Q4

REPORT INFORMATION
  Report Type: Spontaneous
  Country: US (occurrence: US)
  Receive Date: 20130514
  Receipt Date: 20191218
  Transmission Date: 20200122
  Serious: Yes (Hospitalization, Disabling, Other)
  Sender: FDA-Public Use
  Company Number: US-009507513-1305USA005528

PATIENT
  Sex: Female
  Weight: 58.96 kg

DRUGS (4)
  1. FOSAMAX [Suspect]
     Active Substance: ALENDRONATE SODIUM
     Indication: OSTEOPENIA
     Dosage: 70 MG, QW
     Route: 048
     Dates: start: 200012, end: 20110702
  2. ALENDRONATE SODIUM. [Suspect]
     Active Substance: ALENDRONATE SODIUM
     Indication: OSTEOPENIA
     Dosage: 70 MG, QW
     Route: 048
     Dates: start: 20080222, end: 201105
  3. FOSAMAX [Suspect]
     Active Substance: ALENDRONATE SODIUM
     Indication: OSTEOPOROSIS
  4. ALENDRONATE SODIUM. [Suspect]
     Active Substance: ALENDRONATE SODIUM
     Indication: OSTEOPOROSIS

REACTIONS (33)
  - Intramedullary rod insertion [Unknown]
  - Knee arthroplasty [Unknown]
  - Lower limb fracture [Unknown]
  - Oophorectomy [Unknown]
  - Diverticulum [Unknown]
  - Inguinal hernia repair [Unknown]
  - Large intestine polyp [Unknown]
  - Pneumonia [Recovering/Resolving]
  - Femur fracture [Unknown]
  - Spinal cord drainage [Unknown]
  - Cancer surgery [Unknown]
  - Basal cell carcinoma [Unknown]
  - Anaemia postoperative [Recovering/Resolving]
  - Oedema [Unknown]
  - Actinic keratosis [Unknown]
  - Squamous cell carcinoma of head and neck [Unknown]
  - Skin cancer [Unknown]
  - Calcium deficiency [Unknown]
  - Tibia fracture [Unknown]
  - Vitamin D deficiency [Unknown]
  - Leukoplakia oral [Unknown]
  - Low turnover osteopathy [Not Recovered/Not Resolved]
  - Cholecystectomy [Unknown]
  - Cancer surgery [Unknown]
  - Atypical femur fracture [Recovering/Resolving]
  - Tobacco abuse [Unknown]
  - Essential hypertension [Unknown]
  - Hypophosphataemia [Unknown]
  - Tibia fracture [Unknown]
  - Skin ulcer [Unknown]
  - Tibia fracture [Unknown]
  - Fracture delayed union [Unknown]
  - Hyperkeratosis [Unknown]

NARRATIVE: CASE EVENT DATE: 20010701
